FAERS Safety Report 9866319 (Version 1)
Quarter: 2014Q1

REPORT INFORMATION
  Report Type: Spontaneous
  Country: US (occurrence: US)
  Receive Date: 20140203
  Receipt Date: 20140203
  Transmission Date: 20141002
  Serious: No
  Sender: FDA-Public Use
  Company Number: US-ALLERGAN-1318815US

PATIENT
  Age: 78 Year
  Sex: Female

DRUGS (4)
  1. RESTASIS [Suspect]
     Indication: DRY EYE
     Dosage: 2 GTT, QAM
     Route: 047
     Dates: end: 20131127
  2. RESTASIS [Suspect]
     Dosage: 2 GTT, BID
     Route: 047
     Dates: start: 20131113
  3. LATANOPROST [Concomitant]
     Indication: GLAUCOMA
     Dosage: UNK UNK, QHS
     Route: 047
  4. THERATEARS NUTRITION [Concomitant]
     Indication: DRY EYE

REACTIONS (3)
  - Inappropriate schedule of drug administration [Unknown]
  - Vision blurred [Not Recovered/Not Resolved]
  - Dry eye [Unknown]
